FAERS Safety Report 7339453-8 (Version None)
Quarter: 2011Q1

REPORT INFORMATION
  Report Type: 
  Country: None (occurrence: None)
  Receive Date: 20110308
  Receipt Date: 20110103
  Transmission Date: 20110831
  Serious: No
  Sender: FDA-Public Use
  Company Number: US-AMGEN-USASP2011000200

PATIENT
  Age: 82 Year
  Sex: Female

DRUGS (2)
  1. THYROID THERAPY [Concomitant]
  2. PROLIA [Suspect]
     Indication: OSTEOPOROSIS POSTMENOPAUSAL
     Dosage: 60 MG, Q6MO
     Dates: start: 20100901

REACTIONS (6)
  - MUSCLE SPASTICITY [None]
  - BACK PAIN [None]
  - INSOMNIA [None]
  - CHILLS [None]
  - WHITE BLOOD CELL COUNT DECREASED [None]
  - PARAESTHESIA [None]
